FAERS Safety Report 13801353 (Version 6)
Quarter: 2018Q1

REPORT INFORMATION
  Report Type: Spontaneous
  Country: US (occurrence: US)
  Receive Date: 20170727
  Receipt Date: 20180119
  Transmission Date: 20180508
  Serious: Yes (Other)
  Sender: FDA-Public Use
  Company Number: US-PFIZER INC-2017323916

PATIENT
  Age: 7 Year
  Sex: Female

DRUGS (1)
  1. QUILLIVANT XR [Suspect]
     Active Substance: METHYLPHENIDATE HYDROCHLORIDE
     Indication: ATTENTION DEFICIT/HYPERACTIVITY DISORDER
     Dosage: 6 ML, 1X/DAY, (DAILY IN THE MORNING)
     Route: 048
     Dates: start: 20160928

REACTIONS (10)
  - Nervousness [Recovered/Resolved]
  - Drug dose omission [Unknown]
  - Hallucination [Unknown]
  - Panic attack [Recovered/Resolved]
  - Anxiety [Unknown]
  - Fear [Unknown]
  - Feeling abnormal [Recovered/Resolved]
  - Crying [Recovered/Resolved]
  - Product preparation error [Unknown]
  - Movement disorder [Recovered/Resolved]

NARRATIVE: CASE EVENT DATE: 2017
